FAERS Safety Report 5991013-7 (Version None)
Quarter: 2008Q4

REPORT INFORMATION
  Report Type: 
  Country: None (occurrence: None)
  Receive Date: 20081211
  Receipt Date: 20081203
  Transmission Date: 20090506
  Serious: Yes (Death, Hospitalization, Disabling)
  Sender: FDA-Public Use
  Company Number: JP-MERCK-0811USA01255

PATIENT
  Age: 69 Year
  Sex: Female
  Weight: 71 kg

DRUGS (11)
  1. HYZAAR [Suspect]
     Indication: HYPERTENSION
     Route: 048
     Dates: start: 20080930, end: 20081030
  2. ADALAT CC [Concomitant]
     Indication: HYPERTENSION
     Route: 048
     Dates: end: 20081104
  3. AMARYL [Concomitant]
     Indication: DIABETES MELLITUS
     Route: 048
     Dates: end: 20081104
  4. ACTOS [Concomitant]
     Indication: DIABETES MELLITUS
     Route: 048
     Dates: end: 20081104
  5. BLOPRESS [Concomitant]
     Indication: HYPERTENSION
     Route: 048
     Dates: end: 20080929
  6. ALLELOCK [Concomitant]
     Indication: RASH
     Route: 048
     Dates: start: 20081006, end: 20081011
  7. RULID [Concomitant]
     Indication: RASH
     Route: 048
     Dates: start: 20081011, end: 20081015
  8. ZYRTEC [Concomitant]
     Indication: RASH
     Route: 048
     Dates: start: 20081015, end: 20081020
  9. ALLEGRA [Concomitant]
     Indication: RASH
     Route: 048
     Dates: start: 20081020, end: 20081030
  10. TAVEGYL [Concomitant]
     Indication: RASH
     Route: 048
     Dates: start: 20081020, end: 20081030
  11. ATARAX [Concomitant]
     Indication: RASH
     Route: 048
     Dates: start: 20081015, end: 20081020

REACTIONS (5)
  - ANOREXIA [None]
  - DERMATOMYOSITIS [None]
  - HEPATIC FUNCTION ABNORMAL [None]
  - INTERSTITIAL LUNG DISEASE [None]
  - PYREXIA [None]
